FAERS Safety Report 6550852-4 (Version None)
Quarter: 2010Q1

REPORT INFORMATION
  Report Type: 
  Country: None (occurrence: None)
  Receive Date: 20100125
  Receipt Date: 20100115
  Transmission Date: 20100710
  Serious: Yes (Other)
  Sender: FDA-Public Use
  Company Number: CA-ABBOTT-09P-028-0613081-00

PATIENT
  Sex: Female

DRUGS (3)
  1. LIPIDIL [Suspect]
     Indication: DRUG USE FOR UNKNOWN INDICATION
  2. LIPITOR [Suspect]
     Indication: DRUG USE FOR UNKNOWN INDICATION
     Route: 048
  3. LIPITOR [Suspect]

REACTIONS (5)
  - FIBROMA [None]
  - HEADACHE [None]
  - HYSTERECTOMY [None]
  - MYALGIA [None]
  - UTERINE LEIOMYOMA [None]
